FAERS Safety Report 6564891-0 (Version None)
Quarter: 2010Q1

REPORT INFORMATION
  Report Type: 
  Country: None (occurrence: None)
  Receive Date: 20100201
  Receipt Date: 20100126
  Transmission Date: 20100710
  Serious: Yes (Death)
  Sender: FDA-Public Use
  Company Number: US-GILEAD-2010-0026698

PATIENT
  Sex: Female
  Weight: 68.1 kg

DRUGS (13)
  1. LETAIRIS [Suspect]
     Indication: PULMONARY ARTERIAL HYPERTENSION
     Route: 048
     Dates: start: 20090714
  2. VENTAVIS [Concomitant]
  3. VIAGRA [Concomitant]
  4. FUROSEMIDE [Concomitant]
  5. LISINOPRIL [Concomitant]
  6. DIGOXIN [Concomitant]
  7. ALENDRONATE SODIUM [Concomitant]
  8. VENTOLIN HFA [Concomitant]
  9. ADVAIR DISKUS 100/50 [Concomitant]
  10. PREVACID [Concomitant]
  11. SPIRIVA [Concomitant]
  12. LEVOTHYROXINE SODIUM [Concomitant]
  13. POTASSIUM CHLORIDE [Concomitant]

REACTIONS (1)
  - DEATH [None]
